FAERS Safety Report 6839424-1 (Version None)
Quarter: 2010Q2

REPORT INFORMATION
  Report Type: 
  Country: None (occurrence: None)
  Receive Date: 20100629
  Receipt Date: 20100414
  Transmission Date: 20101027
  Serious: No
  Sender: FDA-Public Use
  Company Number: US-WYE-H14614810

PATIENT
  Age: 52 Year
  Sex: Female

DRUGS (3)
  1. PRISTIQ [Suspect]
     Dosage: ORAL
     Route: 048
     Dates: start: 20090601
  2. BENAZEPRIL HYDROCHLORIDE [Concomitant]
  3. SIMVASTATIN [Concomitant]

REACTIONS (4)
  - ABDOMINAL DISCOMFORT [None]
  - DRUG WITHDRAWAL SYNDROME [None]
  - FEELING ABNORMAL [None]
  - TREMOR [None]
